FAERS Safety Report 6649197-3 (Version None)
Quarter: 2010Q1

REPORT INFORMATION
  Report Type: 
  Country: None (occurrence: None)
  Receive Date: 20100324
  Receipt Date: 20100315
  Transmission Date: 20100710
  Serious: Yes (Hospitalization)
  Sender: FDA-Public Use
  Company Number: B0639895A

PATIENT
  Sex: Female

DRUGS (2)
  1. LAMICTAL CD [Suspect]
     Indication: DRUG USE FOR UNKNOWN INDICATION
     Route: 048
     Dates: start: 20060101, end: 20100201
  2. LEPONEX [Suspect]
     Route: 048
     Dates: start: 20090203, end: 20100112

REACTIONS (3)
  - BLOOD GLUCOSE ABNORMAL [None]
  - GENERAL PHYSICAL HEALTH DETERIORATION [None]
  - RASH MACULO-PAPULAR [None]
